FAERS Safety Report 17518551 (Version 1)
Quarter: 2020Q1

REPORT INFORMATION
  Report Type: Spontaneous
  Country: FR (occurrence: FR)
  Receive Date: 20200310
  Receipt Date: 20200310
  Transmission Date: 20200409
  Serious: Yes (Hospitalization)
  Sender: FDA-Public Use
  Company Number: FR-BIOGEN-2020BI00845634

PATIENT
  Age: 64 Year
  Sex: Female
  Weight: 56 kg

DRUGS (1)
  1. PLEGRIDY [Suspect]
     Active Substance: PEGINTERFERON BETA-1A
     Indication: MULTIPLE SCLEROSIS
     Route: 058
     Dates: start: 20191115, end: 20191115

REACTIONS (4)
  - Acute kidney injury [Recovered/Resolved]
  - Transaminases increased [Not Recovered/Not Resolved]
  - Diabetes mellitus [Recovered/Resolved]
  - Proteinuria [Recovered/Resolved]

NARRATIVE: CASE EVENT DATE: 20191215
